FAERS Safety Report 13656367 (Version 2)
Quarter: 2017Q3

REPORT INFORMATION
  Report Type: Spontaneous
  Country: JP (occurrence: JP)
  Receive Date: 20170615
  Receipt Date: 20170711
  Transmission Date: 20171127
  Serious: Yes (Hospitalization, Other)
  Sender: FDA-Public Use
  Company Number: JP-BAXALTA-2017BXJ005627

PATIENT
  Age: 36 Year
  Sex: Male
  Weight: 57 kg

DRUGS (6)
  1. FEIBA NF [Suspect]
     Active Substance: ANTI-INHIBITOR COAGULANT COMPLEX
     Indication: FACTOR VIII INHIBITION
     Dosage: UNK, PROPHYLAXIS
     Route: 042
  2. NOVOSEVEN [Concomitant]
     Active Substance: COAGULATION FACTOR VIIA RECOMBINANT HUMAN
     Indication: HAEMORRHAGE
     Dosage: UNK, SEQUENTIAL
     Route: 042
  3. NOVOSEVEN [Concomitant]
     Active Substance: COAGULATION FACTOR VIIA RECOMBINANT HUMAN
     Dosage: 5 MG, 1X A DAY
     Route: 042
     Dates: start: 20170117, end: 20170121
  4. FEIBA NF [Suspect]
     Active Substance: ANTI-INHIBITOR COAGULANT COMPLEX
     Dosage: 4000 IU, 1X A DAY
     Route: 042
     Dates: start: 20170117, end: 20170122
  5. FEIBA NF [Suspect]
     Active Substance: ANTI-INHIBITOR COAGULANT COMPLEX
     Dosage: 2000 IU, 1X A DAY
     Route: 042
     Dates: start: 20170116, end: 20170116
  6. NOVOSEVEN [Concomitant]
     Active Substance: COAGULATION FACTOR VIIA RECOMBINANT HUMAN
     Dosage: 10 MG, 1X A DAY
     Route: 042
     Dates: start: 20170116, end: 20170116

REACTIONS (4)
  - Fall [Unknown]
  - Lower limb fracture [Unknown]
  - Haemarthrosis [Unknown]
  - Avulsion fracture [Unknown]

NARRATIVE: CASE EVENT DATE: 20170116
